FAERS Safety Report 19304818 (Version 2)
Quarter: 2021Q2

REPORT INFORMATION
  Report Type: Spontaneous
  Country: IL (occurrence: IL)
  Receive Date: 20210525
  Receipt Date: 20210609
  Transmission Date: 20210717
  Serious: Yes (Hospitalization)
  Sender: FDA-Public Use
  Company Number: IL-ALLERGAN-2119957US

PATIENT
  Sex: Male
  Weight: 10 kg

DRUGS (2)
  1. BOTOX [Suspect]
     Active Substance: ONABOTULINUMTOXINA
     Indication: SALIVARY HYPERSECRETION
     Dosage: 40 UNITS, SINGLE
     Dates: start: 20210427, end: 20210427
  2. DEPALEPT [Concomitant]
     Active Substance: VALPROIC ACID
     Indication: SEIZURE

REACTIONS (3)
  - Muscle injury [Unknown]
  - Off label use [Unknown]
  - Dysphagia [Recovering/Resolving]

NARRATIVE: CASE EVENT DATE: 202104
